FAERS Safety Report 9383750 (Version 1)
Quarter: 2013Q3

REPORT INFORMATION
  Report Type: Spontaneous
  Country: US (occurrence: US)
  Receive Date: 20130704
  Receipt Date: 20130704
  Transmission Date: 20140515
  Serious: No
  Sender: FDA-Public Use
  Company Number: US-PFIZER INC-2013196136

PATIENT
  Age: 59 Year
  Sex: Female

DRUGS (2)
  1. SOMAVERT [Suspect]
     Indication: HYPOTHALAMO-PITUITARY DISORDER
     Dosage: 30 MG, 1X/DAY
     Route: 058
     Dates: start: 20100602
  2. SOMATULINE DEPOT [Concomitant]
     Dosage: UNK

REACTIONS (3)
  - Muscular weakness [Unknown]
  - Muscle spasms [Unknown]
  - Bone pain [Unknown]
